FAERS Safety Report 23238930 (Version 1)
Quarter: 2023Q4

REPORT INFORMATION
  Report Type: Spontaneous
  Country: CN (occurrence: CN)
  Receive Date: 20231129
  Receipt Date: 20231129
  Transmission Date: 20240110
  Serious: Yes (Hospitalization, Other)
  Sender: FDA-Public Use
  Company Number: CN-002147023-NVSC2023CN251549

PATIENT
  Age: 69 Year
  Sex: Male
  Weight: 85 kg

DRUGS (2)
  1. VOTRIENT [Suspect]
     Active Substance: PAZOPANIB HYDROCHLORIDE
     Indication: Neoplasm malignant
     Dosage: 800 MG, QD
     Route: 048
     Dates: start: 20230719, end: 20230809
  2. TISLELIZUMAB [Suspect]
     Active Substance: TISLELIZUMAB
     Indication: Neoplasm malignant
     Dosage: 200 MG, QD
     Route: 041
     Dates: start: 20230718, end: 20230718

REACTIONS (4)
  - Rash [Recovering/Resolving]
  - Blister [Unknown]
  - Skin injury [Unknown]
  - Skin fissures [Unknown]

NARRATIVE: CASE EVENT DATE: 20231018
